FAERS Safety Report 9384424 (Version 2)
Quarter: 2014Q1

REPORT INFORMATION
  Report Type: Spontaneous
  Country: US (occurrence: US)
  Receive Date: 20130705
  Receipt Date: 20140109
  Transmission Date: 20141002
  Serious: Yes (Hospitalization)
  Sender: FDA-Public Use
  Company Number: US-009507513-1307USA001000

PATIENT
  Sex: Female

DRUGS (5)
  1. NASONEX [Suspect]
     Indication: SINUSITIS
     Dosage: 2 SPRAYS, BID
     Route: 045
  2. CLARITIN [Concomitant]
     Route: 048
  3. ADVAIR [Concomitant]
  4. ZYRTEC [Concomitant]
  5. VITAMINS (UNSPECIFIED) [Concomitant]

REACTIONS (8)
  - Asthma [Recovering/Resolving]
  - Cellulitis [Unknown]
  - Bunion operation [Unknown]
  - Visual acuity reduced [Recovering/Resolving]
  - Rhinorrhoea [Recovering/Resolving]
  - Drug dose omission [Unknown]
  - Off label use [Unknown]
  - Product quality issue [Unknown]
